FAERS Safety Report 23353889 (Version 1)
Quarter: 2024Q1

REPORT INFORMATION
  Report Type: Spontaneous
  Country: CA (occurrence: CA)
  Receive Date: 20240101
  Receipt Date: 20240101
  Transmission Date: 20240409
  Serious: Yes (Other)
  Sender: FDA-Public Use
  Company Number: CA-AUROBINDO-AUR-APL-2023-081438

PATIENT
  Age: 31 Year
  Sex: Female
  Weight: 65 kg

DRUGS (2)
  1. AMOXICILLIN\CLAVULANIC ACID [Suspect]
     Active Substance: AMOXICILLIN\CLAVULANIC ACID
     Indication: Pharyngitis streptococcal
     Dosage: UNK
     Route: 065
  2. REMICADE [Suspect]
     Active Substance: INFLIXIMAB
     Indication: Crohn^s disease
     Dosage: 300 MILLIGRAM (1 EVENRY 8 WEEKS)
     Route: 041

REACTIONS (2)
  - Streptococcus test positive [Recovering/Resolving]
  - Viral tonsillitis [Recovering/Resolving]
